FAERS Safety Report 5708268-6 (Version None)
Quarter: 2008Q2

REPORT INFORMATION
  Report Type: 
  Country: None (occurrence: None)
  Receive Date: 20080417
  Receipt Date: 20080410
  Transmission Date: 20081010
  Serious: Yes (Other)
  Sender: FDA-Public Use
  Company Number: US-BAYER-200816077NA

PATIENT
  Age: 56 Year
  Sex: Female
  Weight: 88 kg

DRUGS (3)
  1. MAGNEVIST [Suspect]
     Indication: NUCLEAR MAGNETIC RESONANCE IMAGING
     Dosage: TOTAL DAILY DOSE: 17 ML
     Route: 042
     Dates: start: 20080304, end: 20080304
  2. TOPROL-XL [Concomitant]
     Indication: HYPERTENSION
  3. ENALAPRIL MALEATE [Concomitant]
     Indication: HYPERTENSION

REACTIONS (4)
  - BLOOD PRESSURE INCREASED [None]
  - ORAL PRURITUS [None]
  - THROAT IRRITATION [None]
  - URTICARIA [None]
